FAERS Safety Report 9207252 (Version 2)
Quarter: 2013Q2

REPORT INFORMATION
  Report Type: Spontaneous
  Country: US (occurrence: US)
  Receive Date: 20130403
  Receipt Date: 20130603
  Transmission Date: 20140414
  Serious: No
  Sender: FDA-Public Use
  Company Number: US-B.I. PHARMACEUTICALS,INC./RIDGEFIELD-2008-BP-10985BP

PATIENT
  Age: 71 Year
  Sex: Female

DRUGS (16)
  1. SPIRIVA HANDIHALER [Suspect]
     Indication: CHRONIC OBSTRUCTIVE PULMONARY DISEASE
     Dosage: 18 MCG
     Route: 055
     Dates: start: 200708
  2. SPIRIVA HANDIHALER [Suspect]
     Indication: BRONCHITIS CHRONIC
  3. ALBUTEROL [Concomitant]
     Indication: CHRONIC OBSTRUCTIVE PULMONARY DISEASE
     Route: 055
     Dates: start: 200702
  4. ATENOLOL [Concomitant]
     Indication: HEART RATE INCREASED
     Dosage: 25 MG
     Route: 048
     Dates: start: 2002
  5. ATENOLOL [Concomitant]
     Indication: HYPERTENSION
  6. DIGOXIN [Concomitant]
     Indication: HEART RATE INCREASED
     Dosage: 250 MCG
     Route: 048
     Dates: start: 2002
  7. CLORAZEPATE [Concomitant]
     Indication: ANXIETY
     Route: 048
     Dates: start: 1993
  8. BUFFERIN [Concomitant]
     Indication: ANTICOAGULANT THERAPY
     Dosage: 325 MG
     Route: 048
     Dates: start: 2002
  9. MVT [Concomitant]
     Indication: VITAMIN SUPPLEMENTATION
     Route: 048
  10. CALCIUM [Concomitant]
     Indication: SUPPLEMENTATION THERAPY
     Dosage: 1000 MG
     Route: 048
  11. VITAMIN C [Concomitant]
     Indication: SUPPLEMENTATION THERAPY
     Route: 048
  12. OXYGEN [Concomitant]
     Indication: OXYGEN SUPPLEMENTATION
     Route: 055
     Dates: start: 2007
  13. ADVAIR [Concomitant]
     Route: 055
  14. PROAIR [Concomitant]
     Route: 055
  15. SINGULAIR [Concomitant]
     Route: 048
  16. MUCINEX [Concomitant]
     Route: 048

REACTIONS (9)
  - Cough [Not Recovered/Not Resolved]
  - Respiratory depth decreased [Not Recovered/Not Resolved]
  - Dyspnoea [Not Recovered/Not Resolved]
  - Sputum increased [Not Recovered/Not Resolved]
  - Sputum discoloured [Not Recovered/Not Resolved]
  - Cough [Recovered/Resolved]
  - Fatigue [Recovered/Resolved]
  - Productive cough [Recovered/Resolved]
  - Product quality issue [Recovered/Resolved]
